FAERS Safety Report 21025049 (Version 1)
Quarter: 2022Q2

REPORT INFORMATION
  Report Type: Other
  Country: US (occurrence: None)
  Receive Date: 20220629
  Receipt Date: 20220629
  Transmission Date: 20220721
  Serious: Yes (Other)
  Sender: FDA-Public Use
  Company Number: US-ROCHE-1198939

PATIENT
  Sex: Female

DRUGS (22)
  1. CELLCEPT [Suspect]
     Active Substance: MYCOPHENOLATE MOFETIL
     Indication: Systemic scleroderma
     Route: 048
  2. CELLCEPT [Suspect]
     Active Substance: MYCOPHENOLATE MOFETIL
     Indication: Systemic lupus erythematosus
     Dosage: ON 30/FEB/2015, SHE RECEIVED THE MOST RECENT KNOWN DOSE OF MYCOPHENOLATE MOFETIL.
     Route: 048
  3. CELLCEPT [Suspect]
     Active Substance: MYCOPHENOLATE MOFETIL
     Indication: Chronic cutaneous lupus erythematosus
     Route: 048
  4. CLOBETASOL PROPIONATE [Concomitant]
     Active Substance: CLOBETASOL PROPIONATE
     Dosage: TO AFFECTED AREAS
     Route: 061
  5. ENALAPRIL [Concomitant]
     Active Substance: ENALAPRIL
     Route: 048
  6. ENALAPRIL [Concomitant]
     Active Substance: ENALAPRIL
     Dosage: ALONG WITH 10 MG TO A TOTAL OF 15 MG
     Route: 048
  7. ENALAPRIL [Concomitant]
     Active Substance: ENALAPRIL
     Route: 048
  8. FLURANDRENOLIDE [Concomitant]
     Active Substance: FLURANDRENOLIDE
  9. HYPROMELLOSES [Concomitant]
     Active Substance: HYPROMELLOSES
     Route: 031
  10. GLYCERIN [Concomitant]
     Active Substance: GLYCERIN
     Route: 031
  11. HYDROXYCHLOROQUINE [Concomitant]
     Active Substance: HYDROXYCHLOROQUINE
     Route: 048
  12. LEVOTHYROXINE [Concomitant]
     Active Substance: LEVOTHYROXINE
  13. OMEPRAZOLE [Concomitant]
     Active Substance: OMEPRAZOLE
     Route: 048
  14. QUINACRINE HYDROCHLORIDE [Concomitant]
     Active Substance: QUINACRINE HYDROCHLORIDE
  15. TRIAMCINOLONE [Concomitant]
     Active Substance: TRIAMCINOLONE
     Dosage: TO AFFECTED AREAS
     Route: 061
  16. PREDNISONE [Concomitant]
     Active Substance: PREDNISONE
     Route: 048
  17. TEMAZEPAM [Concomitant]
     Active Substance: TEMAZEPAM
     Route: 048
  18. TRAZODONE [Concomitant]
     Active Substance: TRAZODONE HYDROCHLORIDE
     Dosage: 50-100 MG
     Route: 048
  19. PREDNISONE [Concomitant]
     Active Substance: PREDNISONE
  20. TEMAZEPAM [Concomitant]
     Active Substance: TEMAZEPAM
  21. TEMAZEPAM [Concomitant]
     Active Substance: TEMAZEPAM
  22. TRAZODONE [Concomitant]
     Active Substance: TRAZODONE HYDROCHLORIDE

REACTIONS (12)
  - Subcutaneous abscess [Unknown]
  - Deafness [Unknown]
  - Pain [Unknown]
  - Vitamin D increased [Unknown]
  - Aspartate aminotransferase increased [Unknown]
  - Vomiting [Unknown]
  - Cough [Unknown]
  - Rash macular [Unknown]
  - Lung diffusion test decreased [Unknown]
  - Hypoacusis [Unknown]
  - Intentional product misuse [Unknown]
  - Off label use [Unknown]
